FAERS Safety Report 6999013-5 (Version None)
Quarter: 2010Q3

REPORT INFORMATION
  Report Type: 
  Country: None (occurrence: None)
  Receive Date: 20100920
  Receipt Date: 20100706
  Transmission Date: 20110219
  Serious: No
  Sender: FDA-Public Use
  Company Number: US-ASTRAZENECA-2010SE31482

PATIENT
  Age: 653 Month
  Sex: Female
  Weight: 81.2 kg

DRUGS (3)
  1. SEROQUEL [Suspect]
     Indication: BIPOLAR DISORDER
     Route: 048
     Dates: start: 20070101, end: 20100401
  2. SEROQUEL [Suspect]
     Route: 048
     Dates: start: 20100401, end: 20100601
  3. SEROQUEL [Suspect]
     Route: 048
     Dates: start: 20100601

REACTIONS (5)
  - DECREASED APPETITE [None]
  - INCORRECT DOSE ADMINISTERED [None]
  - INSOMNIA [None]
  - NAUSEA [None]
  - NIGHTMARE [None]
